FAERS Safety Report 4627700-2 (Version None)
Quarter: 2005Q2

REPORT INFORMATION
  Report Type: 
  Country: None (occurrence: None)
  Receive Date: 20050401
  Receipt Date: 20050318
  Transmission Date: 20051028
  Serious: Yes (Hospitalization)
  Sender: FDA-Public Use
  Company Number: ACO_0132_2005

PATIENT
  Age: 40 Year
  Sex: Male

DRUGS (6)
  1. TERNELIN [Suspect]
     Dosage: 20 MG ONCE PO
     Route: 048
     Dates: start: 20041008, end: 20041008
  2. ROHYPNOL [Suspect]
     Dosage: 46 MG ONCE PO
     Route: 048
     Dates: start: 20041008, end: 20041008
  3. HALCION [Suspect]
     Dosage: 2.5 MG ONCE PO
     Route: 048
     Dates: start: 20041008, end: 20041008
  4. LORAZEPAM [Suspect]
     Dosage: 20 MG ONCE PO
     Route: 048
     Dates: start: 20041008, end: 20041008
  5. SLOWHEIM [Suspect]
     Dosage: 75 MG ONCE PO
     Route: 048
     Dates: start: 20041008, end: 20041008
  6. VITAMIN A [Suspect]
     Dosage: 600 MG ONCE PO
     Route: 048
     Dates: start: 20041008, end: 20041008

REACTIONS (20)
  - ABDOMINAL PAIN [None]
  - ALANINE AMINOTRANSFERASE INCREASED [None]
  - ASPARTATE AMINOTRANSFERASE INCREASED [None]
  - BLOOD CALCIUM INCREASED [None]
  - BLOOD LACTATE DEHYDROGENASE INCREASED [None]
  - BLOOD POTASSIUM INCREASED [None]
  - BLOOD PRESSURE SYSTOLIC INCREASED [None]
  - BLOOD SODIUM DECREASED [None]
  - BODY TEMPERATURE DECREASED [None]
  - DRY SKIN [None]
  - GLASGOW COMA SCALE ABNORMAL [None]
  - HAEMODIALYSIS [None]
  - INTENTIONAL MISUSE [None]
  - OEDEMA PERIPHERAL [None]
  - ORAL INTAKE REDUCED [None]
  - RENAL FAILURE ACUTE [None]
  - RHABDOMYOLYSIS [None]
  - SOMNOLENCE [None]
  - SUICIDE ATTEMPT [None]
  - VOMITING [None]
